FAERS Safety Report 11732370 (Version 1)
Quarter: 2015Q4

REPORT INFORMATION
  Report Type: Report from Study
  Country: TR (occurrence: TR)
  Receive Date: 20151113
  Receipt Date: 20151113
  Transmission Date: 20160304
  Serious: Yes (Hospitalization)
  Sender: FDA-Public Use
  Company Number: PHHY2015TR145055

PATIENT
  Sex: Male
  Weight: 58 kg

DRUGS (2)
  1. SOMATROPIN [Suspect]
     Active Substance: SOMATROPIN
     Indication: GROWTH HORMONE DEFICIENCY
     Dosage: 1.4 MG, QD FOR 5 DAYS
     Route: 058
     Dates: start: 20150406
  2. SOMATROPIN [Suspect]
     Active Substance: SOMATROPIN
     Dosage: 1.5 MG, QD FOR 2 DAYS
     Route: 058
     Dates: end: 20150715

REACTIONS (1)
  - Anaemia [Recovering/Resolving]
